FAERS Safety Report 11319928 (Version 1)
Quarter: 2015Q3

REPORT INFORMATION
  Report Type: Report from Study
  Country: US (occurrence: US)
  Receive Date: 20150729
  Receipt Date: 20150729
  Transmission Date: 20151125
  Serious: Yes (Other)
  Sender: FDA-Public Use
  Company Number: US-GILEAD-2015-0165154

PATIENT
  Age: 50 Year
  Sex: Male

DRUGS (4)
  1. LASIX [Concomitant]
     Active Substance: FUROSEMIDE
  2. KEPPRA [Concomitant]
     Active Substance: LEVETIRACETAM
  3. AMBRISENTAN [Suspect]
     Active Substance: AMBRISENTAN
     Indication: PRODUCT USED FOR UNKNOWN INDICATION
     Dosage: 10 MG, QD
     Route: 065
     Dates: start: 20130809
  4. SPIRONOLACTONE. [Concomitant]
     Active Substance: SPIRONOLACTONE

REACTIONS (12)
  - Blister [Unknown]
  - Liver disorder [Unknown]
  - Seizure [Unknown]
  - Haematoma [Unknown]
  - Syncope [Unknown]
  - Loss of consciousness [Unknown]
  - Memory impairment [Unknown]
  - International normalised ratio increased [Unknown]
  - Pain [Unknown]
  - Contusion [Unknown]
  - Varices oesophageal [Unknown]
  - Peripheral swelling [Unknown]

NARRATIVE: CASE EVENT DATE: 20150717
